FAERS Safety Report 10723274 (Version 1)
Quarter: 2015Q1

REPORT INFORMATION
  Report Type: Spontaneous
  Country: NL (occurrence: NL)
  Receive Date: 20150120
  Receipt Date: 20150120
  Transmission Date: 20150721
  Serious: Yes (Other)
  Sender: FDA-Public Use
  Company Number: NL-TEVA-535106ISR

PATIENT
  Age: 7 Year
  Sex: Female

DRUGS (3)
  1. HALOPERIDOL. [Suspect]
     Active Substance: HALOPERIDOL
     Indication: MENINGITIS
     Dosage: .12 MG/KG DAILY;
     Route: 048
  2. HALOPERIDOL. [Suspect]
     Active Substance: HALOPERIDOL
     Dosage: .02 MG/KG DAILY;
     Route: 048
  3. HALOPERIDOL. [Suspect]
     Active Substance: HALOPERIDOL
     Indication: SEPTIC SHOCK
     Dosage: .08 MG/KG DAILY;
     Route: 048

REACTIONS (4)
  - Depressed level of consciousness [Recovering/Resolving]
  - Tremor [Recovering/Resolving]
  - Neurological symptom [Recovering/Resolving]
  - Dystonia [Recovering/Resolving]
